FAERS Safety Report 15515609 (Version 5)
Quarter: 2019Q4

REPORT INFORMATION
  Report Type: Report from Study
  Country: GB (occurrence: GB)
  Receive Date: 20181017
  Receipt Date: 20191118
  Transmission Date: 20200122
  Serious: No
  Sender: FDA-Public Use
  Company Number: GB-ROCHE-2198021

PATIENT
  Age: 46 Year
  Sex: Male
  Weight: 83 kg

DRUGS (29)
  1. FUCIDIN [FUSIDIC ACID] [Concomitant]
     Active Substance: FUSIDIC ACID
     Route: 061
     Dates: start: 20181002, end: 20190102
  2. ONDANSETRON [Concomitant]
     Active Substance: ONDANSETRON
     Indication: NAUSEA
  3. MORPHINE SULPHATE [Concomitant]
     Active Substance: MORPHINE SULFATE
     Indication: HEADACHE
     Dosage: 10 MG/5ML
     Route: 048
     Dates: start: 20181018, end: 20181022
  4. AMOXICILLIN. [Concomitant]
     Active Substance: AMOXICILLIN
     Indication: INFECTION
     Route: 048
     Dates: start: 20180203
  5. AMOXICILLIN. [Concomitant]
     Active Substance: AMOXICILLIN
     Indication: PRODUCTIVE COUGH
     Route: 048
     Dates: start: 20180403
  6. FUCIDIN [FUSIDIC ACID] [Concomitant]
     Active Substance: FUSIDIC ACID
     Indication: RASH
     Route: 061
     Dates: start: 20180403
  7. CODEINE [Concomitant]
     Active Substance: CODEINE
     Route: 048
     Dates: start: 20181019, end: 20181022
  8. PARACETAMOL [Concomitant]
     Active Substance: ACETAMINOPHEN
     Indication: HEADACHE
  9. BETNOVATE [Concomitant]
     Active Substance: BETAMETHASONE
     Indication: FOLLICULITIS
     Route: 065
     Dates: start: 20180417, end: 20190511
  10. PREDNISOLONE. [Concomitant]
     Active Substance: PREDNISOLONE
     Route: 048
     Dates: start: 20181019, end: 20181106
  11. BENZYDAMINE [Concomitant]
     Active Substance: BENZYDAMINE
     Route: 048
     Dates: start: 20181002, end: 20181202
  12. OMEPRAZOLE. [Concomitant]
     Active Substance: OMEPRAZOLE
     Route: 048
     Dates: start: 20181019, end: 20181022
  13. VEMURAFENIB. [Suspect]
     Active Substance: VEMURAFENIB
     Indication: MALIGNANT MELANOMA
     Dosage: 3 TABLETS ADMINISTERED PRIOR TO ONSET OF THE EVENT.?DATE OF MOST RECENT DOSE: 02/OCT/2018
     Route: 048
     Dates: start: 20171219
  14. AMLODIPINE [Concomitant]
     Active Substance: AMLODIPINE BESYLATE
     Indication: HYPERTENSION
     Route: 048
     Dates: start: 20180108
  15. TAMIFLU [Concomitant]
     Active Substance: OSELTAMIVIR PHOSPHATE
     Route: 048
     Dates: start: 20180205
  16. EPIDUO [Concomitant]
     Active Substance: ADAPALENE\BENZOYL PEROXIDE
     Indication: FOLLICULITIS
     Route: 065
     Dates: start: 20180417, end: 20190501
  17. ENOXAPARIN [Concomitant]
     Active Substance: ENOXAPARIN
     Indication: PROPHYLAXIS
     Route: 058
     Dates: start: 20180730
  18. SENNA [Concomitant]
     Active Substance: SENNA LEAF\SENNOSIDES\SENNOSIDES A AND B
     Indication: CONSTIPATION
     Route: 048
     Dates: start: 20181021, end: 20181021
  19. PARACETAMOL [Concomitant]
     Active Substance: ACETAMINOPHEN
     Indication: PYREXIA
     Route: 048
     Dates: start: 20180203
  20. AMLODIPINE [Concomitant]
     Active Substance: AMLODIPINE BESYLATE
     Indication: HYPERTENSION
     Route: 048
     Dates: start: 20180501
  21. PARACETAMOL [Concomitant]
     Active Substance: ACETAMINOPHEN
     Indication: HEADACHE
     Route: 048
     Dates: start: 20181018, end: 20181019
  22. COBIMETINIB. [Suspect]
     Active Substance: COBIMETINIB
     Indication: MALIGNANT MELANOMA
     Dosage: DATE OF MOST RECENT DOSE: 02/OCT/2018
     Route: 048
     Dates: start: 20171219
  23. PREDNISOLONE. [Concomitant]
     Active Substance: PREDNISOLONE
     Indication: PNEUMONITIS
     Route: 048
     Dates: start: 20180730
  24. ONDANSETRON [Concomitant]
     Active Substance: ONDANSETRON
     Indication: DIZZINESS
     Route: 048
     Dates: start: 20181020, end: 20181021
  25. CODEINE [Concomitant]
     Active Substance: CODEINE
     Indication: HEADACHE
     Route: 048
     Dates: start: 20181018, end: 20181022
  26. HYDROCORTISONE. [Concomitant]
     Active Substance: HYDROCORTISONE
     Indication: ADRENAL INSUFFICIENCY
     Route: 048
     Dates: start: 20180529
  27. ATEZOLIZUMAB. [Suspect]
     Active Substance: ATEZOLIZUMAB
     Indication: MALIGNANT MELANOMA
     Dosage: DATE OF MOST RECENT DOSE: 18/SEP/2018 AND 02/OCT/2018
     Route: 042
     Dates: start: 20180123
  28. PARACETAMOL [Concomitant]
     Active Substance: ACETAMINOPHEN
     Indication: PAIN
     Route: 048
     Dates: start: 20181018, end: 20181019
  29. CYCLIZINE [Concomitant]
     Active Substance: CYCLIZINE
     Indication: DIZZINESS
     Route: 048
     Dates: start: 20181019, end: 20181022

REACTIONS (1)
  - Nephritis [Recovered/Resolved]

NARRATIVE: CASE EVENT DATE: 20181002
